FAERS Safety Report 6788506-1 (Version None)
Quarter: 2010Q2

REPORT INFORMATION
  Report Type: 
  Country: None (occurrence: None)
  Receive Date: 20100623
  Receipt Date: 20080326
  Transmission Date: 20101027
  Serious: Yes (Other)
  Sender: FDA-Public Use
  Company Number: US-PFIZER INC-2008027386

PATIENT
  Sex: Female
  Weight: 54.545 kg

DRUGS (1)
  1. DIFLUCAN [Suspect]
     Dates: start: 20080301

REACTIONS (1)
  - NEUTROPENIA [None]
